FAERS Safety Report 9851385 (Version 1)
Quarter: 2014Q1

REPORT INFORMATION
  Report Type: Report from Study
  Country: DE (occurrence: DE)
  Receive Date: 20140129
  Receipt Date: 20140129
  Transmission Date: 20141002
  Serious: Yes (Other)
  Sender: FDA-Public Use
  Company Number: DE-009507513-1401DEU011592

PATIENT
  Sex: Female

DRUGS (1)
  1. FOSAMAX EINMAL W?CHENTLICH 70 MG TABLETTEN [Suspect]
     Indication: OSTEOPOROSIS POSTMENOPAUSAL
     Dosage: 70 MG, QW
     Route: 048

REACTIONS (3)
  - Injury [Unknown]
  - Poisoning [Unknown]
  - Procedural complication [Unknown]
